FAERS Safety Report 15702204 (Version 4)
Quarter: 2019Q1

REPORT INFORMATION
  Report Type: Spontaneous
  Country: US (occurrence: US)
  Receive Date: 20181209
  Receipt Date: 20190121
  Transmission Date: 20190417
  Serious: Yes (Other)
  Sender: FDA-Public Use
  Company Number: US-AMGEN-USASP2018173807

PATIENT
  Age: 84 Year
  Sex: Female
  Weight: 60.77 kg

DRUGS (12)
  1. ALENDRONATE SODIUM. [Concomitant]
     Active Substance: ALENDRONATE SODIUM
     Dosage: 70 MG, UNK
     Route: 048
  2. LEVOTHYROXINE SODIUM. [Concomitant]
     Active Substance: LEVOTHYROXINE SODIUM
     Dosage: 50 MCG, QD
     Route: 048
  3. MUPIROCIN. [Concomitant]
     Active Substance: MUPIROCIN
     Dosage: UNK, TID (2 %)
  4. REPATHA [Suspect]
     Active Substance: EVOLOCUMAB
     Indication: HYPERLIPIDAEMIA
     Dosage: 420 MG/3.5 ML, QMO
     Route: 058
     Dates: start: 20180630, end: 201812
  5. PROAIR HFA [Concomitant]
     Active Substance: ALBUTEROL SULFATE
     Dosage: 105 MCGG, AS NECESSARY
  6. REPATHA [Suspect]
     Active Substance: EVOLOCUMAB
     Dosage: UNK
     Route: 065
  7. VITAMIN D3 [Concomitant]
     Active Substance: CHOLECALCIFEROL
     Dosage: 1000 UNIT, QD
  8. ASPIRIN 81 [Concomitant]
     Active Substance: ASPIRIN
     Dosage: 81 MG, QD
     Route: 048
  9. ELIQUIS [Concomitant]
     Active Substance: APIXABAN
     Indication: EMBOLISM VENOUS
     Dosage: 5 MG, QD
  10. OXYGEN. [Concomitant]
     Active Substance: OXYGEN
     Dosage: UNK
  11. REPATHA [Suspect]
     Active Substance: EVOLOCUMAB
     Dosage: 420 MG, QMO
     Route: 058
  12. ALBUTEROL SULFATE. [Concomitant]
     Active Substance: ALBUTEROL SULFATE
     Dosage: 1.25 MG/3 ML, AS NECESSARY

REACTIONS (16)
  - Injection site rash [Recovering/Resolving]
  - Injection site pruritus [Recovered/Resolved]
  - Dizziness [Unknown]
  - Injection site mass [Recovered/Resolved]
  - Myalgia [Unknown]
  - Injection site erythema [Recovered/Resolved]
  - Palpitations [Unknown]
  - Intermittent claudication [Unknown]
  - Arthralgia [Unknown]
  - Dyspnoea paroxysmal nocturnal [Unknown]
  - Injection site irritation [Unknown]
  - Chronic obstructive pulmonary disease [Unknown]
  - Injection site swelling [Recovering/Resolving]
  - Syncope [Unknown]
  - Injection site pain [Recovered/Resolved]
  - Oedema [Unknown]

NARRATIVE: CASE EVENT DATE: 2018
